FAERS Safety Report 4865336-9 (Version None)
Quarter: 2005Q4

REPORT INFORMATION
  Report Type: 
  Country: None (occurrence: None)
  Receive Date: 20051223
  Receipt Date: 20051215
  Transmission Date: 20060501
  Serious: Yes (Other)
  Sender: FDA-Public Use
  Company Number: 2005PK02517

PATIENT

DRUGS (2)
  1. ATACAND [Suspect]
     Indication: ESSENTIAL HYPERTENSION
     Route: 048
     Dates: start: 20041214, end: 20050124
  2. ATACAND [Suspect]
     Route: 048
     Dates: start: 20050125

REACTIONS (1)
  - SICK SINUS SYNDROME [None]
